FAERS Safety Report 7018251-9 (Version None)
Quarter: 2010Q3

REPORT INFORMATION
  Report Type: 
  Country: None (occurrence: None)
  Receive Date: 20100928
  Receipt Date: 20100922
  Transmission Date: 20110219
  Serious: Yes (Other)
  Sender: FDA-Public Use
  Company Number: JP-SANOFI-AVENTIS-2010SA057206

PATIENT
  Age: 81 Year
  Sex: Female

DRUGS (5)
  1. LASIX [Suspect]
     Route: 048
     Dates: end: 20100912
  2. LASIX [Concomitant]
     Dosage: DOSAGE UNKNOWN
     Route: 042
     Dates: start: 20100913
  3. WARFARIN [Concomitant]
  4. OMEPRAZOLE [Concomitant]
  5. LANIRAPID [Concomitant]

REACTIONS (1)
  - PANCYTOPENIA [None]
